FAERS Safety Report 22798915 (Version 3)
Quarter: 2024Q4

REPORT INFORMATION
  Report Type: Spontaneous
  Country: US (occurrence: US)
  Receive Date: 20230808
  Receipt Date: 20241106
  Transmission Date: 20250115
  Serious: Yes (Other)
  Sender: PFIZER
  Company Number: US-PFIZER INC-PV202300136128

PATIENT
  Age: 79 Year
  Sex: Female
  Weight: 79.3 kg

DRUGS (6)
  1. IBRANCE [Suspect]
     Active Substance: PALBOCICLIB
     Indication: Breast cancer metastatic
     Dosage: 100 MG, CYCLIC (TAKE 1 TABLET ONCE A DAY X 21 DAYS THEN 7 DAYS OFF)
     Route: 048
     Dates: start: 20200124
  2. IBRANCE [Suspect]
     Active Substance: PALBOCICLIB
     Dosage: 100 MG, CYCLIC (TAKE 1 TABLET ONCE A DAY X 21 DAYS THEN 7 DAYS OFF)
     Route: 048
     Dates: start: 20201224
  3. IBRANCE [Suspect]
     Active Substance: PALBOCICLIB
     Dosage: 100 MG, CYCLIC (TAKE 1 TABLET DAILY X 7 DAYS THEN 7 DAYS OFF)
     Route: 048
  4. IBRANCE [Suspect]
     Active Substance: PALBOCICLIB
     Dosage: 125 MG-TAKE 1 TABLET BY MOUTH DAILY FOR 21 DAYS ON, THEN 7 DAYS OFF
     Route: 048
  5. LETROZOLE [Suspect]
     Active Substance: LETROZOLE
     Dosage: UNK
     Dates: start: 201912
  6. XGEVA [Suspect]
     Active Substance: DENOSUMAB
     Dosage: UNK
     Dates: start: 202001

REACTIONS (13)
  - Hypertension [Recovering/Resolving]
  - Chronic kidney disease [Unknown]
  - Microcytic anaemia [Unknown]
  - Oedema [Unknown]
  - Nasopharyngitis [Recovering/Resolving]
  - Rhinovirus infection [Recovering/Resolving]
  - Cough [Recovering/Resolving]
  - Nasal congestion [Recovering/Resolving]
  - Anxiety [Unknown]
  - Fatigue [Recovering/Resolving]
  - Anaemia [Recovering/Resolving]
  - Off label use [Unknown]
  - Product use issue [Unknown]
